FAERS Safety Report 19389864 (Version 2)
Quarter: 2021Q3

REPORT INFORMATION
  Report Type: Spontaneous
  Country: US (occurrence: US)
  Receive Date: 20210608
  Receipt Date: 20210916
  Transmission Date: 20211014
  Serious: No
  Sender: FDA-Public Use
  Company Number: US-ORGANON-O2106USA000562

PATIENT
  Age: 17 Year
  Sex: Female
  Weight: 151.02 kg

DRUGS (1)
  1. NEXPLANON [Suspect]
     Active Substance: ETONOGESTREL
     Indication: CONTRACEPTION
     Dosage: 68 MILLIGRAM, EVERY 3 YEARS, LEFT UPPER ARM
     Route: 059
     Dates: start: 20200811, end: 20210225

REACTIONS (9)
  - Product quality issue [Unknown]
  - Procedural pain [Recovered/Resolved]
  - Implant site fibrosis [Recovered/Resolved]
  - Mood swings [Recovered/Resolved]
  - Complication of device removal [Recovered/Resolved]
  - Feeling abnormal [Recovered/Resolved]
  - Device kink [Recovered/Resolved]
  - Implant site bruising [Unknown]
  - Complication of device insertion [Recovered/Resolved]

NARRATIVE: CASE EVENT DATE: 20200811
